FAERS Safety Report 16715230 (Version 2)
Quarter: 2019Q4

REPORT INFORMATION
  Report Type: Spontaneous
  Country: US (occurrence: US)
  Receive Date: 20190819
  Receipt Date: 20191024
  Transmission Date: 20200122
  Serious: No
  Sender: FDA-Public Use
  Company Number: US-PFIZER INC-2019347472

PATIENT
  Age: 70 Year
  Sex: Female
  Weight: 68 kg

DRUGS (4)
  1. MISOPROSTOL. [Suspect]
     Active Substance: MISOPROSTOL
     Indication: HYPOTONIA
     Dosage: 600 UG, (3X200 MCG)
  2. MISOPROSTOL. [Suspect]
     Active Substance: MISOPROSTOL
     Indication: CERVICAL SPINAL STENOSIS
     Dosage: 600 UG, 1X/DAY (600 MCG ORAL X 1)
     Route: 048
  3. CRESTOR [Concomitant]
     Active Substance: ROSUVASTATIN CALCIUM
     Indication: BLOOD CHOLESTEROL INCREASED
     Dosage: 10 MG, DAILY
     Dates: start: 2018
  4. MISOPROSTOL. [Suspect]
     Active Substance: MISOPROSTOL
     Indication: BIOPSY ENDOMETRIUM
     Dosage: 200 UG, 3X/DAY (3 TABLETS)
     Route: 048
     Dates: start: 20190812

REACTIONS (4)
  - Diarrhoea [Recovered/Resolved]
  - Product use in unapproved indication [Recovered/Resolved]
  - Muscle spasms [Recovered/Resolved]
  - Off label use [Recovered/Resolved]

NARRATIVE: CASE EVENT DATE: 20190812
